FAERS Safety Report 12235464 (Version 2)
Quarter: 2016Q2

REPORT INFORMATION
  Report Type: Report from Study
  Country: JP (occurrence: JP)
  Receive Date: 20160404
  Receipt Date: 20160412
  Transmission Date: 20160815
  Serious: Yes (Hospitalization)
  Sender: FDA-Public Use
  Company Number: JP-EISAI MEDICAL RESEARCH-EC-2016-015767

PATIENT
  Age: 75 Year
  Sex: Male
  Weight: 60 kg

DRUGS (7)
  1. HARNAL [Concomitant]
     Active Substance: TAMSULOSIN HYDROCHLORIDE
  2. CELECOX [Concomitant]
     Active Substance: CELECOXIB
  3. MUCOSTA [Concomitant]
     Active Substance: REBAMIPIDE
  4. SERMION [Concomitant]
     Active Substance: NICERGOLINE
  5. AVOLVE [Concomitant]
     Active Substance: DUTASTERIDE
  6. DONEPEZIL. [Suspect]
     Active Substance: DONEPEZIL
     Indication: DEMENTIA WITH LEWY BODIES
     Dosage: PLACEBO
     Route: 048
     Dates: start: 20160226, end: 20160317
  7. DONEPEZIL. [Suspect]
     Active Substance: DONEPEZIL
     Route: 048
     Dates: start: 20160318, end: 20160331

REACTIONS (1)
  - Gait disturbance [Not Recovered/Not Resolved]

NARRATIVE: CASE EVENT DATE: 20160305
